FAERS Safety Report 6986578-2 (Version None)
Quarter: 2010Q3

REPORT INFORMATION
  Report Type: 
  Country: None (occurrence: None)
  Receive Date: 20100915
  Receipt Date: 20090714
  Transmission Date: 20110219
  Serious: No
  Sender: FDA-Public Use
  Company Number: US-WYE-H10158209

PATIENT
  Age: 39 Year
  Sex: Female
  Weight: 59.02 kg

DRUGS (4)
  1. PRISTIQ [Suspect]
     Indication: DEPRESSION
     Route: 048
     Dates: start: 20090623
  2. PERCOCET [Concomitant]
  3. METOPROLOL TARTRATE [Concomitant]
  4. FENTANYL CITRATE [Concomitant]

REACTIONS (2)
  - DRUG INEFFECTIVE [None]
  - ORGASM ABNORMAL [None]
